FAERS Safety Report 6975614-5 (Version None)
Quarter: 2010Q3

REPORT INFORMATION
  Report Type: 
  Country: None (occurrence: None)
  Receive Date: 20100910
  Receipt Date: 20090421
  Transmission Date: 20110219
  Serious: No
  Sender: FDA-Public Use
  Company Number: US-WYE-H08705809

PATIENT
  Sex: Female
  Weight: 70.37 kg

DRUGS (9)
  1. PRISTIQ [Suspect]
     Indication: DEPRESSION
     Route: 048
     Dates: start: 20090313
  2. FELODIPINE [Concomitant]
  3. DIGOXIN [Concomitant]
  4. KLOR-CON [Concomitant]
  5. FUROSEMIDE [Concomitant]
  6. SIMVASTATIN [Concomitant]
  7. FOSAMAX [Concomitant]
  8. METOPROLOL TARTRATE [Concomitant]
  9. ISOSORBIDE [Concomitant]

REACTIONS (5)
  - DIZZINESS [None]
  - HEADACHE [None]
  - HEART RATE INCREASED [None]
  - NAUSEA [None]
  - PALPITATIONS [None]
